FAERS Safety Report 6663079-2 (Version None)
Quarter: 2010Q1

REPORT INFORMATION
  Report Type: 
  Country: None (occurrence: None)
  Receive Date: 20100323
  Receipt Date: 20091125
  Transmission Date: 20100710
  Serious: No
  Sender: FDA-Public Use
  Company Number: 091130-0001199

PATIENT
  Age: 29 Year
  Sex: Female

DRUGS (5)
  1. SABRIL [Suspect]
     Indication: CONVULSION
     Dosage: 500 MG; BID; PO, 1000 MG; BID; PO, 1400 MG; BID; PO
     Route: 048
     Dates: start: 20091031, end: 20091101
  2. SABRIL [Suspect]
     Indication: CONVULSION
     Dosage: 500 MG; BID; PO, 1000 MG; BID; PO, 1400 MG; BID; PO
     Route: 048
     Dates: start: 20091101, end: 20091101
  3. SABRIL [Suspect]
     Indication: CONVULSION
     Dosage: 500 MG; BID; PO, 1000 MG; BID; PO, 1400 MG; BID; PO
     Route: 048
     Dates: start: 20091101
  4. DIAZEPAM [Concomitant]
  5. TOPIRAMATE [Concomitant]

REACTIONS (3)
  - DYSPHAGIA [None]
  - FATIGUE [None]
  - LISTLESS [None]
